FAERS Safety Report 22031683 (Version 1)
Quarter: 2023Q1

REPORT INFORMATION
  Report Type: Spontaneous
  Country: HU (occurrence: HU)
  Receive Date: 20230224
  Receipt Date: 20230224
  Transmission Date: 20230418
  Serious: Yes (Life-Threatening, Other)
  Sender: FDA-Public Use
  Company Number: None

PATIENT
  Age: 49 Year
  Sex: Female

DRUGS (5)
  1. LETROZOLE [Suspect]
     Active Substance: LETROZOLE
     Indication: Invasive ductal breast carcinoma
     Dosage: UNK ROUTE OF ADMINISTRATION : UNKNOWN
     Route: 065
     Dates: start: 20210708, end: 20211223
  2. RIBOCICLIB [Suspect]
     Active Substance: RIBOCICLIB
     Indication: Invasive ductal breast carcinoma
     Dosage: UNK ROUTE OF ADMINISTRATION : UNKNOWN .
     Route: 065
     Dates: start: 2021, end: 20211026
  3. RIBOCICLIB [Suspect]
     Active Substance: RIBOCICLIB
     Dosage: UNK ROUTE OF ADMINISTRATION : UNKNOWN .
     Route: 065
     Dates: start: 20210708, end: 2021
  4. GOSERELIN [Concomitant]
     Active Substance: GOSERELIN
     Indication: Invasive ductal breast carcinoma
     Dosage: UNK ROUTE OF ADMINISTRATION : UNKNOWN .
     Route: 065
     Dates: start: 20210708, end: 20211223
  5. DIETARY SUPPLEMENT\HERBALS\MILK THISTLE [Concomitant]
     Active Substance: DIETARY SUPPLEMENT\HERBALS\MILK THISTLE
     Indication: Product used for unknown indication
     Dosage: 420 MILLIGRAM DAILY; 140 MG, TID  ROUTE OF ADMINISTRATION : UNKNOWN .

REACTIONS (17)
  - Alanine aminotransferase increased [Recovering/Resolving]
  - Aspartate aminotransferase increased [Recovering/Resolving]
  - Metastases to liver [Not Recovered/Not Resolved]
  - Biliary dilatation [Unknown]
  - Neutropenia [Unknown]
  - Blood alkaline phosphatase increased [Recovering/Resolving]
  - Alanine aminotransferase increased [Recovering/Resolving]
  - Bilirubin conjugated increased [Unknown]
  - Liver disorder [Unknown]
  - Gamma-glutamyltransferase increased [Recovering/Resolving]
  - Nausea [Unknown]
  - Lymphadenopathy [Unknown]
  - Eye disorder [Unknown]
  - Aspartate aminotransferase increased [Recovering/Resolving]
  - Hepatic cyst [Unknown]
  - Blood bilirubin increased [Recovered/Resolved]
  - Gamma-glutamyltransferase increased [Recovered/Resolved]

NARRATIVE: CASE EVENT DATE: 20210101
